FAERS Safety Report 23248310 (Version 2)
Quarter: 2023Q4

REPORT INFORMATION
  Report Type: Spontaneous
  Country: RO (occurrence: RO)
  Receive Date: 20231130
  Receipt Date: 20231229
  Transmission Date: 20240110
  Serious: Yes (Death, Hospitalization)
  Sender: FDA-Public Use
  Company Number: RO-STERISCIENCE B.V.-2023-ST-002233

PATIENT
  Sex: Male

DRUGS (22)
  1. VANCOMYCIN [Suspect]
     Active Substance: VANCOMYCIN
     Indication: Serratia infection
     Dosage: 15 MG/KG/DOSE EVERY 12H
     Route: 042
  2. MEROPENEM [Suspect]
     Active Substance: MEROPENEM
     Indication: Serratia infection
     Dosage: 40 MG/KG/DOSE EVERY 12H
     Route: 042
  3. PIPERACILLIN SODIUM\TAZOBACTAM SODIUM [Suspect]
     Active Substance: PIPERACILLIN SODIUM\TAZOBACTAM SODIUM
     Indication: Serratia infection
     Dosage: UNK
     Route: 042
  4. IMIPENEM AND CILASTATIN [Suspect]
     Active Substance: CILASTATIN SODIUM\IMIPENEM
     Indication: Serratia infection
     Dosage: UNK
     Route: 042
  5. NETILMICIN [Suspect]
     Active Substance: NETILMICIN
     Indication: Serratia infection
     Dosage: 4 MILLIGRAM/KILOGRAM, QD
     Route: 065
  6. CIPROFLOXACIN [Suspect]
     Active Substance: CIPROFLOXACIN
     Indication: Serratia infection
     Dosage: 20 MILLIGRAM/KILOGRAM, QD
     Route: 065
  7. CHLORAMPHENICOL [Suspect]
     Active Substance: CHLORAMPHENICOL
     Indication: Serratia infection
     Dosage: 10 MG/KG/DOSE DAILY, START ON DAY 16. OF ADMISSION
  8. AZTREONAM [Suspect]
     Active Substance: AZTREONAM
     Indication: Serratia infection
     Dosage: 30 MILLIGRAM/KILOGRAM, Q8H
     Route: 042
  9. AZTREONAM [Suspect]
     Active Substance: AZTREONAM
     Dosage: UNK
     Route: 042
  10. AMIKACIN [Suspect]
     Active Substance: AMIKACIN
     Indication: Serratia infection
     Dosage: 10 MILLIGRAM/KILOGRAM, Q8H
     Route: 042
  11. AMIKACIN [Suspect]
     Active Substance: AMIKACIN
     Dosage: 5 MILLIGRAM/KILOGRAM, QD
  12. GENTAMICIN [Suspect]
     Active Substance: GENTAMICIN
     Indication: Serratia infection
     Dosage: 2 MILLIGRAM/KILOGRAM, QD
  13. CASPOFUNGIN [Suspect]
     Active Substance: CASPOFUNGIN
     Indication: Candida infection
     Dosage: UNK
     Route: 065
  14. AMPHOTERICIN B [Suspect]
     Active Substance: AMPHOTERICIN B
     Indication: Candida infection
     Dosage: UNK
     Route: 065
  15. CEFEPIME [Suspect]
     Active Substance: CEFEPIME HYDROCHLORIDE
     Indication: Serratia infection
     Dosage: UNK
     Route: 042
  16. LINEZOLID [Suspect]
     Active Substance: LINEZOLID
     Indication: Serratia infection
     Dosage: UNK
     Route: 042
  17. PHENYTOIN [Concomitant]
     Active Substance: PHENYTOIN
     Indication: Status epilepticus
     Dosage: UNK
     Route: 065
  18. DIAZEPAM [Concomitant]
     Active Substance: DIAZEPAM
     Indication: Status epilepticus
     Dosage: UNK
     Route: 065
  19. THIOPENTAL [Concomitant]
     Active Substance: THIOPENTAL
     Indication: Status epilepticus
     Dosage: UNK
     Route: 065
  20. INSULIN NOS [Concomitant]
     Active Substance: INSULIN NOS
     Indication: Hyperglycaemia
     Dosage: UNK
     Route: 065
  21. FLUCONAZOLE [Concomitant]
     Active Substance: FLUCONAZOLE
     Indication: Product used for unknown indication
     Dosage: UNK
     Route: 065
  22. DEXAMETHASONE [Concomitant]
     Active Substance: DEXAMETHASONE
     Indication: Product used for unknown indication
     Dosage: UNK
     Route: 065

REACTIONS (3)
  - Candida infection [Fatal]
  - Drug ineffective [Fatal]
  - Off label use [Unknown]
